FAERS Safety Report 7403648-5 (Version None)
Quarter: 2011Q2

REPORT INFORMATION
  Report Type: 
  Country: None (occurrence: None)
  Receive Date: 20110408
  Receipt Date: 20110329
  Transmission Date: 20111010
  Serious: Yes (Hospitalization)
  Sender: FDA-Public Use
  Company Number: PHEH2010US00685

PATIENT
  Sex: Male

DRUGS (2)
  1. EXJADE [Suspect]
     Indication: AMINO ACID METABOLISM DISORDER
     Dosage: 375 MG, QD
     Route: 048
  2. EXJADE [Suspect]
     Indication: IRON OVERLOAD
     Dosage: 250 MG, QD
     Route: 050
     Dates: start: 20080116

REACTIONS (3)
  - SEPTIC SHOCK [None]
  - INFECTION [None]
  - STAPHYLOCOCCAL SEPSIS [None]
